FAERS Safety Report 5737018-2 (Version None)
Quarter: 2008Q2

REPORT INFORMATION
  Report Type: 
  Country: None (occurrence: None)
  Receive Date: 20080514
  Receipt Date: 20080408
  Transmission Date: 20081010
  Serious: No
  Sender: FDA-Public Use
  Company Number: US-BAYER-200819453NA

PATIENT
  Age: 67 Year
  Sex: Female
  Weight: 59 kg

DRUGS (1)
  1. ULTRAVIST (PHARMACY BULK) [Suspect]
     Indication: SCAN BRAIN
     Dosage: TOTAL DAILY DOSE: 80 ML  UNIT DOSE: 500 ML
     Route: 042
     Dates: start: 20080407, end: 20080407

REACTIONS (6)
  - COUGH [None]
  - ERYTHEMA [None]
  - EYE PRURITUS [None]
  - OCULAR HYPERAEMIA [None]
  - PRURITUS [None]
  - SNEEZING [None]
